FAERS Safety Report 8150320-2 (Version None)
Quarter: 2012Q1

REPORT INFORMATION
  Report Type: 
  Country: None (occurrence: None)
  Receive Date: 20120220
  Receipt Date: 20120216
  Transmission Date: 20120608
  Serious: Yes (Other)
  Sender: FDA-Public Use
  Company Number: US-AMGEN-USASP2012010414

PATIENT
  Sex: Female

DRUGS (1)
  1. PROLIA [Suspect]
     Indication: OSTEOPOROSIS POSTMENOPAUSAL
     Dates: start: 20111219

REACTIONS (7)
  - EYE SWELLING [None]
  - URTICARIA [None]
  - PRURITUS [None]
  - RASH [None]
  - SWELLING FACE [None]
  - DEVICE BREAKAGE [None]
  - FEELING HOT [None]
